FAERS Safety Report 8000420 (Version 4)
Quarter: 2012Q4

REPORT INFORMATION
  Report Type: 
  Country: US (occurrence: US)
  Receive Date: 20110621
  Receipt Date: 20121212
  Transmission Date: 20130627
  Serious: Yes (Other)
  Sender: FDA-Public Use
  Company Number: US-ASTRAZENECA-2011SE12657

PATIENT
  Age: 67 Year
  Sex: Female
  Weight: 73.9 kg

DRUGS (12)
  1. ATACAND [Suspect]
     Route: 048
     Dates: start: 2006
  2. ATACAND HCT [Suspect]
     Dosage: 16MG-12.5MG, EVERYDAY
     Route: 048
  3. NEXIUM [Suspect]
     Route: 048
  4. TOPROL XL [Suspect]
     Route: 048
     Dates: start: 2000
  5. CRESTOR [Suspect]
     Route: 048
  6. ASPIRIN [Concomitant]
     Route: 048
  7. PLAVIX [Concomitant]
     Route: 048
  8. LORTAB [Concomitant]
     Indication: PAIN
     Dosage: 5MG-500MG VERY 4-6 HOURS AS NEEDED
     Route: 048
  9. INSULIN REGULAR HUMAN [Concomitant]
     Dosage: 100UNITS/ML
     Route: 058
  10. XANAX [Concomitant]
     Route: 048
  11. LIPITOR [Concomitant]
     Route: 048
  12. CELEXA [Concomitant]
     Route: 048

REACTIONS (7)
  - Myocardial infarction [Unknown]
  - Nasopharyngitis [Unknown]
  - Coronary artery disease [Unknown]
  - Hyperlipidaemia [Unknown]
  - Hypertension [Unknown]
  - Dyspnoea [Unknown]
  - Dyslipidaemia [Unknown]
